FAERS Safety Report 7301174-5 (Version None)
Quarter: 2011Q1

REPORT INFORMATION
  Report Type: 
  Country: None (occurrence: None)
  Receive Date: 20110218
  Receipt Date: 20110208
  Transmission Date: 20110831
  Serious: Yes (Death, Hospitalization, Other)
  Sender: FDA-Public Use
  Company Number: NL-MEDIMMUNE-MEDI-0012002

PATIENT
  Sex: Male
  Weight: 10 kg

DRUGS (9)
  1. SILDENAFIL [Concomitant]
     Dates: start: 20100101
  2. ERGOCALCIFEROL [Concomitant]
     Dates: start: 20100101
  3. IPRATROPIUM BROMIDE [Concomitant]
     Dates: start: 20100101
  4. SYNAGIS [Suspect]
     Route: 030
     Dates: start: 20101116, end: 20101116
  5. SYNAGIS [Suspect]
     Route: 030
     Dates: start: 20101213, end: 20101213
  6. FUROSEMIDE [Concomitant]
     Dates: start: 20100101
  7. MACROGOL [Concomitant]
     Dates: start: 20100101
  8. ALBUTEROL [Concomitant]
     Dates: start: 20100101
  9. DEXAMETHASONE [Concomitant]
     Dates: start: 20100101

REACTIONS (11)
  - BODY TEMPERATURE DECREASED [None]
  - DYSPNOEA [None]
  - OXYGEN SATURATION DECREASED [None]
  - ARRHYTHMIA [None]
  - PYREXIA [None]
  - RESPIRATORY TRACT INFECTION VIRAL [None]
  - NASOPHARYNGITIS [None]
  - BLOOD PRESSURE ABNORMAL [None]
  - RHINOVIRUS INFECTION [None]
  - OXYGEN SATURATION ABNORMAL [None]
  - CORONA VIRUS INFECTION [None]
